FAERS Safety Report 6313030-X (Version None)
Quarter: 2009Q3

REPORT INFORMATION
  Report Type: 
  Country: None (occurrence: None)
  Receive Date: 20090818
  Receipt Date: 20090811
  Transmission Date: 20100115
  Serious: Yes (Other)
  Sender: FDA-Public Use
  Company Number: FR-ASTRAZENECA-2009SE07805

PATIENT
  Age: 62 Year
  Sex: Female

DRUGS (4)
  1. ARIMIDEX [Suspect]
     Indication: BREAST CANCER
     Route: 048
     Dates: start: 20081101, end: 20090203
  2. FLUOROURACILE MERCK [Suspect]
     Route: 042
     Dates: start: 20090113, end: 20090113
  3. CYCLOPHOSPHAMIDE [Suspect]
     Route: 042
     Dates: start: 20090113, end: 20090113
  4. EPIRUBICINE MERCK [Suspect]
     Route: 042
     Dates: start: 20090113, end: 20090113

REACTIONS (3)
  - ABDOMINAL PAIN UPPER [None]
  - HEPATITIS CHOLESTATIC [None]
  - MUCOSAL INFLAMMATION [None]
